FAERS Safety Report 9608651 (Version 4)
Quarter: 2014Q4

REPORT INFORMATION
  Report Type: Spontaneous
  Country: JP (occurrence: None)
  Receive Date: 20131007
  Receipt Date: 20141229
  Transmission Date: 20150529
  Serious: Yes (Other)
  Sender: FDA-Public Use
  Company Number: JP-RRD-13-00022

PATIENT
  Age: 48 Year
  Sex: Female

DRUGS (4)
  1. METHOTREXATE (METHOTREXATE) [Concomitant]
     Active Substance: METHOTREXATE
  2. COSMEGEN [Suspect]
     Active Substance: DACTINOMYCIN
     Indication: MALIGNANT HYDATIDIFORM MOLE
     Dosage: 0.5MG (FROM DAY 1 TO 4)
     Route: 041
     Dates: start: 2013, end: 2013
  3. FOLINATE CALCIUM (CALCIUM FOLINATE) [Concomitant]
  4. DEXAMETHASONE. [Concomitant]
     Active Substance: DEXAMETHASONE

REACTIONS (7)
  - Femoral artery occlusion [None]
  - Arterial occlusive disease [None]
  - Pulse absent [None]
  - Aortic occlusion [None]
  - Pain in extremity [None]
  - Peripheral arterial occlusive disease [None]
  - Cyanosis [None]

NARRATIVE: CASE EVENT DATE: 2013
